FAERS Safety Report 7973613-8 (Version None)
Quarter: 2011Q4

REPORT INFORMATION
  Report Type: 
  Country: None (occurrence: None)
  Receive Date: 20111122
  Receipt Date: 20110809
  Transmission Date: 20120403
  Serious: Yes (Other)
  Sender: FDA-Public Use
  Company Number: PHHY2011US63163

PATIENT
  Age: 49 Year
  Sex: Female
  Weight: 122.9 kg

DRUGS (7)
  1. PROVIGIL [Concomitant]
  2. BACLOFEN [Concomitant]
  3. AMITRIPTYLINE HCL [Concomitant]
  4. LORAZEPAM [Concomitant]
  5. GILENYA [Suspect]
     Indication: RELAPSING-REMITTING MULTIPLE SCLEROSIS
     Dosage: 0.5 MG, QD, ORAL
     Route: 048
     Dates: start: 20110701
  6. TIZANIDINE HYDROCHLORIDE [Concomitant]
  7. RANITIDINE HYDROCHLORIDE [Concomitant]

REACTIONS (18)
  - MALAISE [None]
  - URINARY RETENTION [None]
  - VISION BLURRED [None]
  - EYE PAIN [None]
  - MYELOPATHY [None]
  - OPTIC NEURITIS [None]
  - VISUAL ACUITY REDUCED [None]
  - FATIGUE [None]
  - DYSAESTHESIA [None]
  - MULTIPLE SCLEROSIS RELAPSE [None]
  - DYSURIA [None]
  - GAIT DISTURBANCE [None]
  - POLLAKIURIA [None]
  - MUSCULOSKELETAL STIFFNESS [None]
  - MUSCLE TIGHTNESS [None]
  - MUSCLE SPASMS [None]
  - NOCTURIA [None]
  - FALL [None]
